FAERS Safety Report 24588272 (Version 1)
Quarter: 2024Q4

REPORT INFORMATION
  Report Type: Spontaneous
  Country: US (occurrence: None)
  Receive Date: 20241106
  Receipt Date: 20241106
  Transmission Date: 20250115
  Serious: Yes (Other)
  Sender: Public
  Company Number: None

PATIENT
  Age: 83 Year
  Sex: Male

DRUGS (1)
  1. LENALIDOMIDE [Suspect]
     Active Substance: LENALIDOMIDE
     Indication: Gastrointestinal angiodysplasia
     Dosage: FREQUENCY : DAILY;?
     Route: 048
     Dates: start: 20241003, end: 20241101

REACTIONS (4)
  - Drug intolerance [None]
  - Tremor [None]
  - Asthenia [None]
  - Sleep disorder [None]

NARRATIVE: CASE EVENT DATE: 20241106
